FAERS Safety Report 19592875 (Version 5)
Quarter: 2022Q4

REPORT INFORMATION
  Report Type: Report from Study
  Country: JP (occurrence: JP)
  Receive Date: 20210722
  Receipt Date: 20221216
  Transmission Date: 20230113
  Serious: Yes (Death, Other)
  Sender: FDA-Public Use
  Company Number: JP-TAKEDA-JP201504266

PATIENT
  Age: 0 Year
  Sex: Female

DRUGS (20)
  1. VELAGLUCERASE ALFA [Suspect]
     Active Substance: VELAGLUCERASE ALFA
     Indication: Gaucher^s disease type II
     Dosage: 60 IU/KG, 1X/2WKS
     Route: 041
     Dates: start: 20150427, end: 20200330
  2. FAMOTIDINE [Concomitant]
     Active Substance: FAMOTIDINE
     Indication: Gaucher^s disease type II
     Dosage: 6 MG, UNKNOWN
     Route: 048
     Dates: start: 20150204
  3. HERBALS [Concomitant]
     Active Substance: HERBALS
     Indication: Gaucher^s disease type II
     Dosage: 1 G, UNKNOWN
     Route: 048
     Dates: start: 20150204, end: 20200330
  4. CARBOCYSTEINE [Concomitant]
     Active Substance: CARBOCYSTEINE
     Indication: Gaucher^s disease type II
     Dosage: 150 MG, UNKNOWN
     Route: 048
     Dates: start: 20150123
  5. AMBROXOL HYDROCHLORIDE [Concomitant]
     Active Substance: AMBROXOL HYDROCHLORIDE
     Indication: Gaucher^s disease type II
     Dosage: 25 MILLIGRAM/KILOGRAM, UNKNOWN
     Route: 048
     Dates: start: 20150123, end: 20151020
  6. AMBROXOL HYDROCHLORIDE [Concomitant]
     Active Substance: AMBROXOL HYDROCHLORIDE
     Dosage: 30 MILLIGRAM/KILOGRAM
  7. LEVETIRACETAM [Concomitant]
     Active Substance: LEVETIRACETAM
     Indication: Gaucher^s disease type II
     Dosage: 330 MG, UNKNOWN
     Route: 048
     Dates: start: 20150319, end: 20200330
  8. DIAZEPAM [Concomitant]
     Active Substance: DIAZEPAM
     Indication: Gaucher^s disease type II
     Dosage: 1 MG, UNKNOWN
     Route: 048
     Dates: start: 20150521, end: 20200330
  9. VALPROATE SODIUM [Concomitant]
     Active Substance: VALPROATE SODIUM
     Indication: Gaucher^s disease type II
     Dosage: 6.6 ML, UNKNOWN
     Route: 048
     Dates: start: 20150514, end: 20160523
  10. VALPROATE SODIUM [Concomitant]
     Active Substance: VALPROATE SODIUM
     Dosage: 3 ML, UNKNOWN
     Route: 048
     Dates: start: 20160524, end: 20160605
  11. VALPROATE SODIUM [Concomitant]
     Active Substance: VALPROATE SODIUM
     Dosage: 2 ML, UNKNOWN
     Route: 048
     Dates: start: 20160606, end: 20160622
  12. VALPROATE SODIUM [Concomitant]
     Active Substance: VALPROATE SODIUM
     Dosage: 1 ML, UNKNOWN
     Route: 048
     Dates: start: 20160623
  13. RISPERIDONE [Concomitant]
     Active Substance: RISPERIDONE
     Indication: Gaucher^s disease type II
     Dosage: 0.5 ML, UNKNOWN
     Route: 048
     Dates: start: 20150418, end: 20200330
  14. LEVOCARNITINE [Concomitant]
     Active Substance: LEVOCARNITINE
     Indication: Prophylaxis
     Dosage: 1.3 ML, UNKNOWN
     Route: 048
     Dates: start: 20150514, end: 20200330
  15. LIORESAL [Concomitant]
     Active Substance: BACLOFEN
     Indication: Gaucher^s disease type II
     Dosage: 7 MG, UNKNOWN
     Route: 048
     Dates: start: 20150819
  16. ATARAX-P                           /00058402/ [Concomitant]
     Indication: Prophylaxis
     Dosage: 5 MG, 1X/2WKS
     Route: 042
     Dates: start: 20150427, end: 20160411
  17. HYDROCORTONE                       /00028603/ [Concomitant]
     Indication: Prophylaxis
     Dosage: 50 MG, 1X/2WKS
     Route: 042
     Dates: start: 20150511, end: 20160411
  18. PREDONINE                          /00016203/ [Concomitant]
     Indication: Prophylaxis
     Dosage: 5 MG, 1X/2WKS
     Route: 042
     Dates: start: 20150511, end: 20160411
  19. PHENOBARBITAL [Concomitant]
     Active Substance: PHENOBARBITAL
     Indication: Gaucher^s disease type II
     Dosage: 120 MILLIGRAM, UNKNOWN
     Route: 048
     Dates: end: 20200330
  20. BACLOFEN [Concomitant]
     Active Substance: BACLOFEN
     Indication: Gaucher^s disease type II
     Dosage: UNK, UNKNOWN
     Route: 065

REACTIONS (11)
  - Asphyxia [Fatal]
  - Myoclonic epilepsy [Fatal]
  - Cardio-respiratory arrest [Fatal]
  - Foot fracture [Recovered/Resolved]
  - Foot fracture [Recovered/Resolved]
  - Tibia fracture [Recovered/Resolved]
  - Humerus fracture [Recovered/Resolved]
  - Humerus fracture [Recovered/Resolved]
  - Humerus fracture [Recovered/Resolved]
  - Pyrexia [Recovered/Resolved]
  - Pyrexia [Recovered/Resolved]

NARRATIVE: CASE EVENT DATE: 20150428
